FAERS Safety Report 22164031 (Version 1)
Quarter: 2023Q2

REPORT INFORMATION
  Report Type: Spontaneous
  Country: CN (occurrence: CN)
  Receive Date: 20230402
  Receipt Date: 20230402
  Transmission Date: 20230722
  Serious: Yes (Hospitalization)
  Sender: FDA-Public Use
  Company Number: CN-002147023-NVSC2023CN072867

PATIENT
  Age: 29 Year
  Sex: Female
  Weight: 60 kg

DRUGS (2)
  1. TOBRAMYCIN [Suspect]
     Active Substance: TOBRAMYCIN
     Indication: Eye pain
     Dosage: 1 DOSAGE FORM, TID (1 DROP)
     Route: 047
     Dates: start: 20230310, end: 20230311
  2. TOBRAMYCIN [Suspect]
     Active Substance: TOBRAMYCIN
     Indication: Ocular discomfort

REACTIONS (3)
  - Urticaria [Recovering/Resolving]
  - Pyrexia [Recovering/Resolving]
  - Rash maculo-papular [Recovering/Resolving]

NARRATIVE: CASE EVENT DATE: 20230310
